FAERS Safety Report 11363751 (Version 1)
Quarter: 2015Q3

REPORT INFORMATION
  Report Type: Report from Study
  Country: NZ (occurrence: NZ)
  Receive Date: 20150811
  Receipt Date: 20150811
  Transmission Date: 20151125
  Serious: Yes (Other)
  Sender: FDA-Public Use
  Company Number: NZ-ABBVIE-15K-118-1440127-00

PATIENT
  Age: 37 Year
  Sex: Female

DRUGS (2)
  1. HUMIRA [Suspect]
     Active Substance: ADALIMUMAB
     Indication: RHEUMATOID ARTHRITIS
     Route: 065
  2. HUMIRA [Suspect]
     Active Substance: ADALIMUMAB
     Route: 065

REACTIONS (11)
  - Anxiety [Unknown]
  - Injection site pain [Unknown]
  - Patient-device incompatibility [Unknown]
  - Post procedural infection [Unknown]
  - Drug effect incomplete [Unknown]
  - Injection site bruising [Unknown]
  - Joint arthroplasty [Unknown]
  - Nervousness [Unknown]
  - Injection site cellulitis [Unknown]
  - Fatigue [Unknown]
  - Drug dose omission [Unknown]

NARRATIVE: CASE EVENT DATE: 201501
